FAERS Safety Report 6239516-4 (Version None)
Quarter: 2009Q2

REPORT INFORMATION
  Report Type: 
  Country: None (occurrence: None)
  Receive Date: 20090618
  Receipt Date: 20090618
  Transmission Date: 20091009
  Serious: Yes (Other)
  Sender: FDA-Public Use
  Company Number: None

PATIENT
  Sex: Female
  Weight: 122.4712 kg

DRUGS (1)
  1. ZICAM GEL SWABS ZICAM LLC OF MATRIXX INDUSTRIES [Suspect]
     Indication: NASOPHARYNGITIS
     Dosage: 1 SWAB EVERY 4 HOURS NASAL (ONLY USED 1 DOSE)
     Route: 045
     Dates: start: 20090605, end: 20090605

REACTIONS (2)
  - AGEUSIA [None]
  - ANOSMIA [None]
